FAERS Safety Report 13879875 (Version 1)
Quarter: 2017Q3

REPORT INFORMATION
  Report Type: Spontaneous
  Country: US (occurrence: CN)
  Receive Date: 20170818
  Receipt Date: 20170818
  Transmission Date: 20171127
  Serious: Yes (Other)
  Sender: FDA-Public Use
  Company Number: US-LANNETT COMPANY, INC.-CN-2017LAN000987

PATIENT
  Age: 43 Year
  Sex: Female

DRUGS (11)
  1. HYDROMORPHONE HYDROCHLORIDE (8MG) [Suspect]
     Active Substance: HYDROMORPHONE HYDROCHLORIDE
     Indication: UROGENITAL DISORDER
  2. LIDOCAINE W/EPINEPHRINE [Suspect]
     Active Substance: EPINEPHRINE\LIDOCAINE
     Indication: EPIDURAL ANAESTHESIA
     Dosage: 3 ML, UNK
     Route: 008
  3. BUPIVICAINE [Suspect]
     Active Substance: BUPIVACAINE
     Indication: UROGENITAL DISORDER
     Dosage: (2 ML OF THE BUPIVACAINE/HYDROMORPHONE MIXTURE AT INTERVALS OF AT LEAST 20 MIN)
     Route: 008
  4. LIDOCAINE W/EPINEPHRINE [Suspect]
     Active Substance: EPINEPHRINE\LIDOCAINE
     Indication: COLECTOMY
  5. HYDROMORPHONE HYDROCHLORIDE (8MG) [Suspect]
     Active Substance: HYDROMORPHONE HYDROCHLORIDE
     Indication: COLECTOMY
     Dosage: (2 ML OF THE BUPIVACAINE/HYDROMORPHONE MIXTURE AT INTERVALS OF AT LEAST 20 MIN)
     Route: 008
  6. BUPIVICAINE [Suspect]
     Active Substance: BUPIVACAINE
     Indication: EPIDURAL ANAESTHESIA
     Dosage: UNK
     Route: 008
  7. HYDROMORPHONE HYDROCHLORIDE (8MG) [Suspect]
     Active Substance: HYDROMORPHONE HYDROCHLORIDE
     Indication: EPIDURAL ANAESTHESIA
     Dosage: 10 ?G/ML, (AT 8 ML/H)
     Route: 008
  8. LIDOCAINE W/EPINEPHRINE [Suspect]
     Active Substance: EPINEPHRINE\LIDOCAINE
     Indication: UROGENITAL DISORDER
  9. BUPIVICAINE [Suspect]
     Active Substance: BUPIVACAINE
     Indication: SURGERY
  10. LIDOCAINE W/EPINEPHRINE [Suspect]
     Active Substance: EPINEPHRINE\LIDOCAINE
     Indication: SURGERY
  11. BUPIVICAINE [Suspect]
     Active Substance: BUPIVACAINE
     Indication: COLECTOMY

REACTIONS (1)
  - Horner^s syndrome [Recovered/Resolved]
